FAERS Safety Report 8435591-7 (Version None)
Quarter: 2012Q2

REPORT INFORMATION
  Report Type: 
  Country: None (occurrence: None)
  Receive Date: 20120614
  Receipt Date: 20120605
  Transmission Date: 20120825
  Serious: Yes (Other)
  Sender: FDA-Public Use
  Company Number: US-JNJFOC-20120604669

PATIENT
  Sex: Female

DRUGS (2)
  1. INVEGA SUSTENNA [Suspect]
     Indication: SCHIZOPHRENIA
     Route: 030
  2. INVEGA SUSTENNA [Suspect]
     Route: 030

REACTIONS (6)
  - AMNESIA [None]
  - DYSARTHRIA [None]
  - MOTOR DYSFUNCTION [None]
  - VISION BLURRED [None]
  - DROOLING [None]
  - CONFUSIONAL STATE [None]
